FAERS Safety Report 5364000-X (Version None)
Quarter: 2007Q2

REPORT INFORMATION
  Report Type: 
  Country: None (occurrence: None)
  Receive Date: 20070620
  Receipt Date: 20070612
  Transmission Date: 20071010
  Serious: Yes (Other)
  Sender: FDA-Public Use
  Company Number: GR-ELI_LILLY_AND_COMPANY-GR200706002755

PATIENT
  Age: 17 Year
  Sex: Female

DRUGS (2)
  1. DULOXETINE HYDROCHLORIDE [Suspect]
     Indication: PANIC DISORDER
     Dosage: 120 MG, DAILY (1/D)
     Route: 048
     Dates: start: 20060101, end: 20070603
  2. DULOXETINE HYDROCHLORIDE [Suspect]
     Dosage: 90 MG, DAILY (1/D)
     Route: 048
     Dates: start: 20070604

REACTIONS (4)
  - AGGRESSION [None]
  - ANXIETY [None]
  - CYCLOTHYMIC DISORDER [None]
  - IRRITABILITY [None]
